FAERS Safety Report 8862693 (Version 1)
Quarter: 2012Q4

REPORT INFORMATION
  Report Type: 
  Country: US (occurrence: US)
  Receive Date: 20121026
  Receipt Date: 20121026
  Transmission Date: 20130627
  Serious: Yes (Hospitalization, Other)
  Sender: FDA-Public Use
  Company Number: US-B.I. PHARMACEUTICALS,INC./RIDGEFIELD-2012-BP-25618BP

PATIENT
  Sex: Female
  Weight: 61 kg

DRUGS (2)
  1. SPIRIVA [Suspect]
     Indication: EMPHYSEMA
     Dosage: 18 mcg
     Route: 055
     Dates: start: 2010
  2. ADVAIR [Concomitant]
     Indication: EMPHYSEMA
     Route: 055
     Dates: start: 2011

REACTIONS (7)
  - Epistaxis [Recovered/Resolved]
  - Cerebral haemorrhage [Unknown]
  - Lung disorder [Not Recovered/Not Resolved]
  - Mental impairment [Not Recovered/Not Resolved]
  - Forced expiratory volume decreased [Not Recovered/Not Resolved]
  - Lung disorder [Not Recovered/Not Resolved]
  - Rib deformity [Not Recovered/Not Resolved]
